FAERS Safety Report 5881840-9 (Version None)
Quarter: 2008Q3

REPORT INFORMATION
  Report Type: 
  Country: None (occurrence: None)
  Receive Date: 20080912
  Receipt Date: 20080714
  Transmission Date: 20090109
  Serious: No
  Sender: FDA-Public Use
  Company Number: US-ABBOTT-08P-163-0462750-00

PATIENT
  Sex: Female
  Weight: 68.1 kg

DRUGS (9)
  1. HUMIRA [Suspect]
     Indication: RHEUMATOID ARTHRITIS
     Route: 050
     Dates: start: 20080401
  2. LEVOTHYROXINE SODIUM [Concomitant]
     Indication: THYROID DISORDER
     Route: 048
     Dates: start: 19980101
  3. LIOTHYRONINE SODIUM [Concomitant]
     Indication: THYROID DISORDER
     Route: 048
  4. CETIRIZINE HYDROCHLORIDE [Concomitant]
     Indication: SINUS DISORDER
     Route: 048
  5. FLUTICASONE PROPIONATE [Concomitant]
     Indication: SINUS DISORDER
     Route: 045
     Dates: start: 20010101
  6. FISH OIL [Concomitant]
     Indication: VITAMIN SUPPLEMENTATION
     Route: 048
  7. VIGRAN [Concomitant]
     Indication: VITAMIN SUPPLEMENTATION
     Route: 048
  8. GAMOLENIC ACID [Concomitant]
     Indication: VITAMIN SUPPLEMENTATION
     Route: 048
  9. CALCIUM CITRATE [Concomitant]
     Indication: MINERAL SUPPLEMENTATION
     Route: 048

REACTIONS (3)
  - ALOPECIA [None]
  - DRUG INEFFECTIVE [None]
  - HAIR TEXTURE ABNORMAL [None]
